FAERS Safety Report 5399917-3 (Version None)
Quarter: 2007Q3

REPORT INFORMATION
  Report Type: 
  Country: None (occurrence: None)
  Receive Date: 20070727
  Receipt Date: 20070727
  Transmission Date: 20080115
  Serious: Yes (Other)
  Sender: FDA-Public Use
  Company Number: None

PATIENT
  Age: 39 Year
  Sex: Male
  Weight: 65.2 kg

DRUGS (13)
  1. KALETRA [Suspect]
     Indication: HIV INFECTION
     Dosage: 20 ML -1600MG/400MG BID PO
     Route: 048
     Dates: start: 20070720, end: 20070721
  2. NICOTINE [Concomitant]
  3. NYSTATIN ORAL SUSP [Concomitant]
  4. ESOMEPRAZOLE MAGNESIUM [Concomitant]
  5. HEPARIN [Concomitant]
  6. INSULIN [Concomitant]
  7. DUONEBS [Concomitant]
  8. KALESTRA [Concomitant]
  9. EMTRIVA [Concomitant]
  10. VIREAD [Concomitant]
  11. SULFAMETHOXAZOLE + TRIMETHOPRIM [Concomitant]
  12. LEVOFLOXACIN [Concomitant]
  13. LORAZEPAM [Concomitant]

REACTIONS (5)
  - HEPATOTOXICITY [None]
  - HYPERBILIRUBINAEMIA [None]
  - INCORRECT DOSE ADMINISTERED [None]
  - MEDICATION ERROR [None]
  - OVERDOSE [None]
